FAERS Safety Report 13212421 (Version 2)
Quarter: 2020Q1

REPORT INFORMATION
  Report Type: Spontaneous
  Country: US (occurrence: US)
  Receive Date: 20170209
  Receipt Date: 20200129
  Transmission Date: 20200409
  Serious: No
  Sender: FDA-Public Use
  Company Number: US-ALLERGAN-1653740US

PATIENT
  Sex: Female

DRUGS (3)
  1. BOTOX [Suspect]
     Active Substance: ONABOTULINUMTOXINA
     Indication: FACIAL SPASM
     Dosage: 18.5 UNITS, SINGLE
     Route: 030
     Dates: start: 20190115, end: 20190115
  2. BOTOX [Suspect]
     Active Substance: ONABOTULINUMTOXINA
     Indication: BLEPHAROSPASM
     Dosage: UNK, SINGLE
     Route: 030
     Dates: start: 20160222, end: 20160222
  3. VITAMIN D [Concomitant]
     Active Substance: VITAMIN D NOS
     Indication: PRODUCT USED FOR UNKNOWN INDICATION
     Dosage: UNK
     Route: 065

REACTIONS (6)
  - Therapeutic response decreased [Unknown]
  - Skin tightness [Not Recovered/Not Resolved]
  - Product packaging quantity issue [Unknown]
  - Muscle twitching [Not Recovered/Not Resolved]
  - Wrong technique in product usage process [Unknown]
  - Drug ineffective [Unknown]
